FAERS Safety Report 7076391-2 (Version None)
Quarter: 2010Q4

REPORT INFORMATION
  Report Type: 
  Country: None (occurrence: None)
  Receive Date: 20101021
  Receipt Date: 20101007
  Transmission Date: 20110411
  Serious: Yes (Hospitalization)
  Sender: FDA-Public Use
  Company Number: DSJ-2010-18405

PATIENT
  Age: 72 Year
  Sex: Female

DRUGS (7)
  1. BENICAR HCT [Suspect]
     Indication: HYPERTENSION
     Dosage: 40/25MG (1 IN 1 D), PER ORAL
     Route: 048
     Dates: start: 20070101, end: 20100317
  2. ROSUVASTATIN (ROSUVASTATIN) (ROSUVASTATIN) [Concomitant]
  3. VILDAGLIPTIN (VILDAGLIPTIN) (VILDAGLIPTIN) [Concomitant]
  4. CLOPIDOGREL (CLOPIDOGREL) (CLOPIDOGREL) [Concomitant]
  5. TRIMETAZIDINE (TRIMETAZIDINE) (TRIMETAZIDINE) [Concomitant]
  6. METFORMIN HCL [Concomitant]
  7. ACETYLSALICYLIC ACID SRT [Concomitant]

REACTIONS (2)
  - STENT PLACEMENT [None]
  - VASCULAR GRAFT [None]
